FAERS Safety Report 8253698-4 (Version None)
Quarter: 2012Q2

REPORT INFORMATION
  Report Type: 
  Country: None (occurrence: None)
  Receive Date: 20120402
  Receipt Date: 20120312
  Transmission Date: 20120825
  Serious: No
  Sender: FDA-Public Use
  Company Number: US-AMGEN-USASP2012016309

PATIENT
  Age: 59 Year
  Sex: Female

DRUGS (3)
  1. ENBREL [Suspect]
     Indication: POLYCHONDRITIS
     Dosage: 50 MG, QWK
     Dates: start: 20120126
  2. PLAQUENIL [Concomitant]
     Dosage: 2 MG, UNK
     Dates: start: 20080101
  3. METHOTREXATE [Concomitant]
     Dosage: UNK
     Dates: start: 20110101

REACTIONS (5)
  - INJECTION SITE ERYTHEMA [None]
  - INJECTION SITE SWELLING [None]
  - INJECTION SITE PAIN [None]
  - MUSCULOSKELETAL STIFFNESS [None]
  - INJECTION SITE PRURITUS [None]
